FAERS Safety Report 7106814-1 (Version None)
Quarter: 2010Q4

REPORT INFORMATION
  Report Type: 
  Country: None (occurrence: None)
  Receive Date: 20101116
  Receipt Date: 20101029
  Transmission Date: 20110411
  Serious: No
  Sender: FDA-Public Use
  Company Number: US-ABBOTT-10P-163-0682154-00

PATIENT
  Sex: Male
  Weight: 56.75 kg

DRUGS (3)
  1. SIMCOR [Suspect]
     Indication: ARTERIOSCLEROSIS
     Dosage: 500/20
     Route: 048
     Dates: start: 20101026
  2. ASPIRIN [Concomitant]
     Indication: PROPHYLAXIS
     Route: 048
  3. ASPIRIN [Concomitant]
     Indication: FLUSHING

REACTIONS (3)
  - DIZZINESS [None]
  - ERYTHEMA [None]
  - FEELING HOT [None]
